FAERS Safety Report 5842363-6 (Version None)
Quarter: 2008Q3

REPORT INFORMATION
  Report Type: 
  Country: None (occurrence: None)
  Receive Date: 20080812
  Receipt Date: 20080728
  Transmission Date: 20090109
  Serious: No
  Sender: FDA-Public Use
  Company Number: US-BOEHRINGER INGELHEIM GMBH, GERMANY-2008-BP-10297BP

PATIENT
  Sex: Female

DRUGS (4)
  1. SPIRIVA [Suspect]
     Indication: CHRONIC OBSTRUCTIVE PULMONARY DISEASE
     Dates: start: 20070420
  2. SPIRIVA [Suspect]
     Indication: ASTHMA
  3. WARFARIN SODIUM [Concomitant]
  4. DILTIAZEM HCL [Concomitant]

REACTIONS (6)
  - DYSURIA [None]
  - HYPOVENTILATION [None]
  - MYALGIA [None]
  - NOCTURIA [None]
  - PAIN [None]
  - URINARY INCONTINENCE [None]
